FAERS Safety Report 9950094 (Version 2)
Quarter: 2014Q1

REPORT INFORMATION
  Report Type: Report from Study
  Country: US (occurrence: US)
  Receive Date: 20140304
  Receipt Date: 20140304
  Transmission Date: 20141002
  Serious: Yes (Hospitalization)
  Sender: FDA-Public Use
  Company Number: US-ABBVIE-13P-163-1060920-00

PATIENT
  Age: 44 Year
  Sex: Female

DRUGS (15)
  1. HUMIRA [Suspect]
     Indication: CROHN^S DISEASE
     Dates: start: 20130301, end: 20130301
  2. UNKNOWN FLU VACCINE [Suspect]
     Indication: PRODUCT USED FOR UNKNOWN INDICATION
     Dates: start: 20130301
  3. UNKNOWN PNEUMONIA VACCINE [Suspect]
     Indication: PRODUCT USED FOR UNKNOWN INDICATION
     Dates: start: 20130301
  4. ONDANSETRON [Concomitant]
     Indication: NAUSEA
  5. PROMETHAZINE [Concomitant]
     Indication: NAUSEA
     Dosage: AS NEEDED
     Route: 048
  6. ASACOL [Concomitant]
     Indication: CROHN^S DISEASE
     Dosage: 400 MG 2 TABLETS THREE TIMES DAILY
  7. SEROQUEL [Concomitant]
     Indication: DEPRESSION
     Dosage: 400 MG 2 AT BEDTIME
  8. TRAMADOL [Concomitant]
     Indication: PAIN
     Dosage: AS NEEDED
  9. XANAX [Concomitant]
     Indication: PRODUCT USED FOR UNKNOWN INDICATION
     Route: 048
  10. REQUIP [Concomitant]
     Indication: RESTLESS LEGS SYNDROME
     Dosage: 3 MG DAILY
  11. GABAPENTIN [Concomitant]
     Indication: PRODUCT USED FOR UNKNOWN INDICATION
     Dosage: 400 MG 2 IN THE MORNING 4 IN THE EVENING
  12. TOPIRAMATE [Concomitant]
     Indication: CONVULSION
  13. CIPROFLOXACIN [Concomitant]
     Indication: PRODUCT USED FOR UNKNOWN INDICATION
     Route: 048
  14. METRONIDAZOLE [Concomitant]
     Indication: PRODUCT USED FOR UNKNOWN INDICATION
     Route: 048
  15. LORTAB [Concomitant]
     Indication: PAIN

REACTIONS (8)
  - Pneumonia bacterial [Not Recovered/Not Resolved]
  - Fatigue [Unknown]
  - Nausea [Unknown]
  - Dizziness postural [Unknown]
  - Pain [Unknown]
  - Chest discomfort [Unknown]
  - Crohn^s disease [Not Recovered/Not Resolved]
  - Device malfunction [Recovered/Resolved]
